FAERS Safety Report 9631961 (Version 4)
Quarter: 2015Q3

REPORT INFORMATION
  Report Type: Spontaneous
  Country: US (occurrence: US)
  Receive Date: 20131018
  Receipt Date: 20150805
  Transmission Date: 20151125
  Serious: Yes (Disabling, Other)
  Sender: FDA-Public Use
  Company Number: US-BAYER-2013-123599

PATIENT
  Age: 26 Year
  Sex: Female
  Weight: 68.03 kg

DRUGS (6)
  1. MIRENA [Suspect]
     Active Substance: LEVONORGESTREL
     Indication: CONTRACEPTION
     Dosage: 20 MCG/24HR, CONT
     Route: 015
     Dates: start: 20090922, end: 20130616
  2. FLOVENT [Concomitant]
     Active Substance: FLUTICASONE PROPIONATE
     Indication: DYSPNOEA
     Dosage: 0.5 MG, UNK
     Dates: start: 1997
  3. METRONIDAZOLE. [Concomitant]
     Active Substance: METRONIDAZOLE
  4. ZYRTEC [Concomitant]
     Active Substance: CETIRIZINE HYDROCHLORIDE
  5. FLONASE [Concomitant]
     Active Substance: FLUTICASONE PROPIONATE
  6. ALBUTEROL. [Concomitant]
     Active Substance: ALBUTEROL

REACTIONS (30)
  - Uterine perforation [None]
  - Medical device discomfort [None]
  - Ovarian cyst [None]
  - Vaginal haemorrhage [Recovered/Resolved]
  - Mood swings [None]
  - Breast tenderness [Recovered/Resolved]
  - Nausea [Recovered/Resolved]
  - Alopecia areata [None]
  - Off label use [None]
  - Abdominal distension [None]
  - Headache [Recovered/Resolved]
  - Abdominal pain [None]
  - Device difficult to use [None]
  - Emotional distress [None]
  - Anhedonia [None]
  - Anxiety [None]
  - Irritability [None]
  - Decreased activity [None]
  - Pelvic pain [None]
  - Dysstasia [None]
  - Abdominal tenderness [None]
  - Back pain [None]
  - Depression [None]
  - Cervical discharge [None]
  - Deformity [None]
  - Menstruation irregular [Recovered/Resolved]
  - Blood urine present [Recovered/Resolved]
  - Device dislocation [None]
  - Dizziness [None]
  - Menorrhagia [None]

NARRATIVE: CASE EVENT DATE: 200909
